FAERS Safety Report 17022594 (Version 1)
Quarter: 2019Q4

REPORT INFORMATION
  Report Type: Spontaneous
  Country: ES (occurrence: ES)
  Receive Date: 20191112
  Receipt Date: 20191112
  Transmission Date: 20200122
  Serious: Yes (Other)
  Sender: FDA-Public Use
  Company Number: ES-MYLANLABS-2019M1107649

PATIENT
  Age: 82 Year
  Sex: Male

DRUGS (7)
  1. ATARAX [Concomitant]
     Active Substance: HYDROXYZINE HYDROCHLORIDE
     Dosage: 25 MILLIGRAM, PRN
     Route: 048
     Dates: start: 20181204
  2. CLOPIDOGREL [Concomitant]
     Active Substance: CLOPIDOGREL BISULFATE
     Dosage: 75 MILLIGRAM, QD, (28 TABLETS)
     Route: 048
     Dates: start: 20120602
  3. PANTOPRAZOL ALTER [Concomitant]
     Dosage: 20 MILLIGRAM, QD
     Route: 048
     Dates: start: 20190605
  4. KARVEZIDE [Concomitant]
     Active Substance: HYDROCHLOROTHIAZIDE\IRBESARTAN
     Dosage: 1 DOSAGE FORM, QD (300 MG/12.5 MG, 28 TABLETS)
     Route: 048
     Dates: start: 20160706
  5. SIMVASTATINA CINFA [Concomitant]
     Dosage: 20 MILLIGRAM, QD (28 TABLETS)
     Route: 048
     Dates: start: 20120602
  6. LORAZEPAM KERN PHARMA [Concomitant]
     Dosage: 1 MILLIGRAM, QD (50 TABLETS)
     Route: 048
     Dates: start: 20120702
  7. SERTRALINE [Suspect]
     Active Substance: SERTRALINE HYDROCHLORIDE
     Indication: PRODUCT USED FOR UNKNOWN INDICATION
     Dosage: 50 MILLIGRAM, QD
     Route: 048
     Dates: start: 20190605, end: 20190612

REACTIONS (4)
  - Faeces discoloured [Recovered/Resolved]
  - Diarrhoea [Recovered/Resolved]
  - Stoma site haemorrhage [Recovered/Resolved]
  - Vision blurred [Recovered/Resolved]

NARRATIVE: CASE EVENT DATE: 20190606
